FAERS Safety Report 17693300 (Version 1)
Quarter: 2020Q2

REPORT INFORMATION
  Report Type: Spontaneous
  Country: US (occurrence: US)
  Receive Date: 20200422
  Receipt Date: 20200422
  Transmission Date: 20200714
  Serious: Yes (Death, Life-Threatening, Hospitalization, Other)
  Sender: FDA-Public Use
  Company Number: US-HIKMA PHARMACEUTICALS USA INC.-US-H14001-20-51126

PATIENT
  Age: 46 Year
  Sex: Male

DRUGS (1)
  1. HEPARIN [Suspect]
     Active Substance: HEPARIN SODIUM
     Indication: ANTICOAGULANT THERAPY
     Dosage: HEPARIN DRIP ()
     Route: 065

REACTIONS (5)
  - Thrombosis [Fatal]
  - Cardiac arrest [Fatal]
  - Pulmonary embolism [Fatal]
  - Drug ineffective [Fatal]
  - Syncope [Recovered/Resolved]
